FAERS Safety Report 4886611-8 (Version None)
Quarter: 2006Q1

REPORT INFORMATION
  Report Type: 
  Country: None (occurrence: None)
  Receive Date: 20060120
  Receipt Date: 20051204
  Transmission Date: 20060701
  Serious: Yes (Other)
  Sender: FDA-Public Use
  Company Number: NLWYE208406DEC05

PATIENT
  Age: 9 Year
  Sex: Female

DRUGS (9)
  1. ENBREL [Suspect]
     Indication: JUVENILE ARTHRITIS
     Route: 058
     Dates: start: 20051106, end: 20051201
  2. NEORAL [Concomitant]
  3. INDOMETHACIN [Concomitant]
  4. CETIRIZINE HCL [Concomitant]
  5. PARACETAMOL [Concomitant]
  6. PREDNISONE [Concomitant]
  7. FISH OIL, HYDROGENATED [Concomitant]
  8. ECHINACEA EXTRACT [Concomitant]
  9. LOSEC [Concomitant]

REACTIONS (6)
  - CONVULSION [None]
  - DYSKINESIA [None]
  - FATIGUE [None]
  - LOSS OF CONSCIOUSNESS [None]
  - NAUSEA [None]
  - UNRESPONSIVE TO VERBAL STIMULI [None]
